FAERS Safety Report 19504073 (Version 1)
Quarter: 2021Q3

REPORT INFORMATION
  Report Type: Not Available
  Country: CO (occurrence: CO)
  Receive Date: 20210707
  Receipt Date: 20210707
  Transmission Date: 20211014
  Serious: Yes (Death, Hospitalization)
  Sender: FDA-Public Use
  Company Number: CO-TEIKOKU PHARMA USA-TPU2021-00660

PATIENT
  Age: 47 Year
  Sex: Female

DRUGS (3)
  1. VERSATIS [Suspect]
     Active Substance: LIDOCAINE
     Indication: AMPUTATION STUMP PAIN
  2. VERSATIS [Suspect]
     Active Substance: LIDOCAINE
     Indication: PAIN
     Route: 061
     Dates: start: 20200506, end: 20200506
  3. VERSATIS [Suspect]
     Active Substance: LIDOCAINE
     Indication: LEG AMPUTATION

REACTIONS (3)
  - Product use issue [Unknown]
  - Spinal pain [Unknown]
  - Death [Fatal]
